FAERS Safety Report 6762816-6 (Version None)
Quarter: 2010Q2

REPORT INFORMATION
  Report Type: 
  Country: None (occurrence: None)
  Receive Date: 20100609
  Receipt Date: 20100531
  Transmission Date: 20101027
  Serious: Yes (Hospitalization)
  Sender: FDA-Public Use
  Company Number: CA-JNJFOC-20100601626

PATIENT
  Sex: Male
  Weight: 79.5 kg

DRUGS (6)
  1. REMICADE [Suspect]
     Indication: CROHN'S DISEASE
     Route: 042
  2. EFFEXOR [Concomitant]
  3. TYLENOL W/ CODEINE [Concomitant]
  4. MAXERAN [Concomitant]
  5. CALCIUM WITH VITAMIN D [Concomitant]
  6. METFORMIN HCL [Concomitant]

REACTIONS (2)
  - ABDOMINAL DISTENSION [None]
  - ABDOMINAL PAIN [None]
